FAERS Safety Report 7030223-7 (Version None)
Quarter: 2010Q4

REPORT INFORMATION
  Report Type: 
  Country: None (occurrence: None)
  Receive Date: 20101006
  Receipt Date: 20100922
  Transmission Date: 20110411
  Serious: Yes (Life-Threatening, Hospitalization)
  Sender: FDA-Public Use
  Company Number: DK-RANBAXY-2010RR-38551

PATIENT
  Sex: Female
  Weight: 60 kg

DRUGS (15)
  1. SIMVASTATIN [Suspect]
     Indication: HYPERCHOLESTEROLAEMIA
     Dosage: 40 MG, UNK
     Route: 048
     Dates: start: 20040601, end: 20090615
  2. FUCIDINE CAP [Suspect]
     Indication: INFECTION
     Dosage: UNK
     Route: 048
     Dates: start: 20090516, end: 20090616
  3. INSULATARD [Concomitant]
     Indication: DIABETES MELLITUS
     Dosage: 15 IU, UNK
     Route: 030
     Dates: start: 20010622
  4. ACTRAPID [Concomitant]
     Indication: DIABETES MELLITUS
     Dosage: 10 IU, UNK
     Route: 058
     Dates: start: 20010622
  5. PANTOLOC [Concomitant]
     Indication: GASTRIC PH DECREASED
     Dosage: 40 MG, UNK
     Route: 048
     Dates: start: 20040621, end: 20090615
  6. ETALPHA [Concomitant]
     Indication: HYPERPARATHYROIDISM
     Dosage: 0.5 MG, UNK
     Route: 048
     Dates: start: 20090504
  7. KALEORID [Concomitant]
     Indication: HYPOKALAEMIA
     Dosage: 750 MG, UNK
     Route: 048
     Dates: start: 20010524, end: 20090615
  8. DIGOXIN ^DAK^ [Concomitant]
     Dosage: 62.5 UG, UNK
     Route: 048
     Dates: start: 20090516, end: 20090615
  9. FURIX [Concomitant]
     Indication: POLYURIA
     Dosage: 120 MG, UNK
     Route: 048
     Dates: start: 20010514, end: 20090615
  10. ADALAT [Concomitant]
     Indication: HYPERTENSION
     Dosage: 30 MG, UNK
     Route: 048
     Dates: start: 20090516, end: 20090615
  11. PREDNISOLON ^DAK^ [Concomitant]
     Indication: RENAL TRANSPLANT
     Dosage: 7.5 MG, UNK
     Route: 048
     Dates: start: 20010913, end: 20090615
  12. NEORECORMON [Concomitant]
     Indication: NEPHROGENIC ANAEMIA
     Dosage: 6000 IU, UNK
     Route: 042
     Dates: start: 20090413
  13. VANCOMYCIN [Concomitant]
     Indication: INFECTION
     Dosage: 1 G, UNK
     Route: 042
     Dates: start: 20090508
  14. PRIMPERAN TAB [Concomitant]
     Indication: NAUSEA
     Dosage: UNK
     Route: 030
     Dates: start: 20090529, end: 20090615
  15. KININ ^DAK^ [Concomitant]
     Indication: RESTLESS LEGS SYNDROME
     Dosage: 100 MG, UNK
     Route: 048
     Dates: start: 20040728, end: 20090615

REACTIONS (2)
  - DRUG INTERACTION [None]
  - RHABDOMYOLYSIS [None]
